FAERS Safety Report 5396930-7 (Version None)
Quarter: 2007Q3

REPORT INFORMATION
  Report Type: 
  Country: None (occurrence: None)
  Receive Date: 20070725
  Receipt Date: 20070719
  Transmission Date: 20080115
  Serious: Yes (Death)
  Sender: FDA-Public Use
  Company Number: PH-ASTRAZENECA-2007AP04357

PATIENT
  Age: 11 Day
  Sex: Male

DRUGS (3)
  1. MERONEM [Suspect]
     Indication: SEPSIS
     Dosage: PATIENT RECEIVED  2 DOSES
     Route: 042
     Dates: start: 20070626, end: 20070626
  2. AMPICILLIN [Concomitant]
  3. AMIKACIN [Concomitant]

REACTIONS (2)
  - POOR QUALITY DRUG ADMINISTERED [None]
  - SEPSIS [None]
